FAERS Safety Report 12014417 (Version 1)
Quarter: 2016Q1

REPORT INFORMATION
  Report Type: Report from Study
  Country: FR (occurrence: FR)
  Receive Date: 20160205
  Receipt Date: 20160205
  Transmission Date: 20160526
  Serious: Yes (Hospitalization, Other)
  Sender: FDA-Public Use
  Company Number: FR-TAKEDA-2016TUS001526

PATIENT
  Age: 40 Year
  Sex: Male
  Weight: 87 kg

DRUGS (19)
  1. CACIT D3 [Concomitant]
     Active Substance: CALCIUM\CHOLECALCIFEROL
     Indication: CROHN^S DISEASE
     Dosage: 2 DF, QD
     Route: 048
     Dates: start: 20110212
  2. VIT B1 B6 [Concomitant]
     Indication: CROHN^S DISEASE
     Dosage: UNK
     Route: 048
     Dates: start: 20110610
  3. ENTOCORT [Concomitant]
     Active Substance: BUDESONIDE
     Dosage: 3 MG, QD
     Route: 048
     Dates: start: 20140522, end: 20140604
  4. SPECIAFOLDINE [Concomitant]
     Active Substance: FOLIC ACID
     Indication: CROHN^S DISEASE
     Dosage: 5 MG, QD
     Route: 048
     Dates: start: 200512
  5. LAZILIX                            /00032601/ [Concomitant]
     Indication: OEDEMA PERIPHERAL
     Dosage: 20 MG, QD
     Route: 048
     Dates: start: 20120324
  6. IMOVANE [Concomitant]
     Active Substance: ZOPICLONE
     Indication: ADVERSE EVENT
     Dosage: 1 DF, UNK
     Route: 048
     Dates: start: 20120323
  7. ENTOCORT [Concomitant]
     Active Substance: BUDESONIDE
     Indication: INTESTINAL OBSTRUCTION
     Dosage: 9 MG, QD
     Route: 048
     Dates: start: 20130402, end: 20140430
  8. PHOSPHORE                          /00859901/ [Concomitant]
     Indication: CROHN^S DISEASE
     Dosage: 750 MG, QD
     Route: 048
     Dates: start: 20120324
  9. DIFFUS K [Concomitant]
     Indication: OEDEMA PERIPHERAL
     Dosage: 1 DF, QD
     Route: 048
     Dates: start: 20120324
  10. CONTRAMAL [Concomitant]
     Active Substance: TRAMADOL HYDROCHLORIDE
     Indication: ADVERSE EVENT
     Dosage: 1 DF, UNK
     Route: 048
     Dates: start: 201201
  11. FORLAX [Concomitant]
     Active Substance: POLYETHYLENE GLYCOL 4000
     Indication: ADVERSE EVENT
     Dosage: 10 G, QD
     Route: 048
     Dates: start: 20130122
  12. TARDYFERON [Concomitant]
     Active Substance: FERROUS SULFATE\FOLIC ACID
     Indication: ANAEMIA
     Dosage: 80 MG, QD
     Route: 048
     Dates: start: 20110312
  13. DOLIPRANE [Concomitant]
     Active Substance: ACETAMINOPHEN
     Indication: ADVERSE EVENT
     Dosage: 1 G, Q8HR
     Route: 048
     Dates: start: 20130414, end: 20130415
  14. DOLIPRANE [Concomitant]
     Active Substance: ACETAMINOPHEN
     Dosage: 1 DF, UNK
     Route: 048
     Dates: start: 201201
  15. RUBOZINC [Concomitant]
     Indication: CROHN^S DISEASE
     Dosage: 15 MG, QD
     Route: 048
     Dates: start: 2007
  16. MAG 2                              /00454301/ [Concomitant]
     Indication: CROHN^S DISEASE
     Dosage: UNK, TID
     Route: 048
     Dates: start: 200512
  17. ENTOCORT [Concomitant]
     Active Substance: BUDESONIDE
     Dosage: 9 MG, QD
     Route: 048
     Dates: start: 20140625
  18. VEDOLIZUMAB [Suspect]
     Active Substance: VEDOLIZUMAB
     Indication: CROHN^S DISEASE
     Dosage: 300 MG, UNK
     Route: 042
     Dates: start: 20100512
  19. ENTOCORT [Concomitant]
     Active Substance: BUDESONIDE
     Dosage: 6 MG, QD
     Route: 048
     Dates: start: 20140501, end: 20140521

REACTIONS (1)
  - Intestinal fistula [Recovered/Resolved]

NARRATIVE: CASE EVENT DATE: 20150116
